FAERS Safety Report 4999482-6 (Version None)
Quarter: 2006Q2

REPORT INFORMATION
  Report Type: 
  Country: None (occurrence: None)
  Receive Date: 20060509
  Receipt Date: 20060509
  Transmission Date: 20061013
  Serious: No
  Sender: FDA-Public Use
  Company Number: None

PATIENT
  Sex: Female
  Weight: 78.9259 kg

DRUGS (1)
  1. ZOCOR [Suspect]
     Indication: HYPERLIPIDAEMIA
     Dosage: 20 MG 1 QD PO
     Route: 048
     Dates: start: 20051101, end: 20060418

REACTIONS (3)
  - ARTHRALGIA [None]
  - BACK PAIN [None]
  - MYALGIA [None]
